FAERS Safety Report 20420370 (Version 1)
Quarter: 2022Q1

REPORT INFORMATION
  Report Type: Spontaneous
  Country: US (occurrence: None)
  Receive Date: 20220202
  Receipt Date: 20220202
  Transmission Date: 20220423
  Serious: Yes (Hospitalization, Other)
  Sender: FDA-Public Use
  Company Number: None

PATIENT
  Sex: Female

DRUGS (1)
  1. HUMIRA [Suspect]
     Active Substance: ADALIMUMAB
     Indication: Hidradenitis
     Dosage: 80MG EVERY 14 DAYS SUBCUTANEOUSLY?
     Route: 058

REACTIONS (4)
  - Back pain [None]
  - Spinal compression fracture [None]
  - Hepatic steatosis [None]
  - Vomiting [None]
